FAERS Safety Report 21914447 (Version 1)
Quarter: 2023Q1

REPORT INFORMATION
  Report Type: Other
  Country: US (occurrence: None)
  Receive Date: 20230126
  Receipt Date: 20230126
  Transmission Date: 20230417
  Serious: Yes (Other)
  Sender: FDA-Public Use
  Company Number: US-ROCHE-3206468

PATIENT
  Age: 64 Year
  Sex: Male

DRUGS (4)
  1. XELODA [Suspect]
     Active Substance: CAPECITABINE
     Indication: Colon cancer
     Dosage: 1-2 TABS IN THE MORNING AND 1 TAB 2 WEEKS IN THE EVENING AND WEEK OFF, TAKE 2 TABLET(S) BY MOUTH IN
     Route: 048
  2. XELODA [Suspect]
     Active Substance: CAPECITABINE
     Indication: Lung neoplasm malignant
  3. XELODA [Suspect]
     Active Substance: CAPECITABINE
     Indication: Metastases to central nervous system
  4. XELODA [Suspect]
     Active Substance: CAPECITABINE
     Indication: Metastases to lymph nodes

REACTIONS (3)
  - Off label use [Unknown]
  - Neuropathy peripheral [Unknown]
  - Parkinson^s disease [Unknown]
